FAERS Safety Report 8603003-6 (Version None)
Quarter: 2012Q3

REPORT INFORMATION
  Report Type: 
  Country: None (occurrence: None)
  Receive Date: 20120817
  Receipt Date: 20120507
  Transmission Date: 20120928
  Serious: No
  Sender: FDA-Public Use
  Company Number: US-GLAXOSMITHKLINE-A0977551A

PATIENT
  Age: 63 Year
  Sex: Female

DRUGS (2)
  1. COUMADIN [Suspect]
     Route: 065
  2. VOTRIENT [Suspect]
     Indication: BREAST CANCER
     Dosage: 800MG PER DAY
     Route: 048

REACTIONS (12)
  - ALOPECIA [None]
  - DECREASED APPETITE [None]
  - HYPERAESTHESIA [None]
  - HEADACHE [None]
  - NAUSEA [None]
  - SKIN HYPERPIGMENTATION [None]
  - FATIGUE [None]
  - RASH [None]
  - WEIGHT DECREASED [None]
  - HYPERTENSION [None]
  - GINGIVAL BLEEDING [None]
  - SKIN PAPILLOMA [None]
